FAERS Safety Report 4930909-1 (Version None)
Quarter: 2006Q1

REPORT INFORMATION
  Report Type: 
  Country: None (occurrence: None)
  Receive Date: 20060227
  Receipt Date: 20060213
  Transmission Date: 20060701
  Serious: Yes (Other)
  Sender: FDA-Public Use
  Company Number: SUSI-2006-00181

PATIENT
  Age: 7 Year
  Sex: Female
  Weight: 30.8 kg

DRUGS (1)
  1. CARBAMAZEPINE [Suspect]
     Indication: EPILEPSY
     Dosage: 2X/DAY BID
     Dates: start: 20041001, end: 20041101

REACTIONS (4)
  - DISTURBANCE IN ATTENTION [None]
  - ORAL SOFT TISSUE DISORDER [None]
  - THINKING ABNORMAL [None]
  - TOURETTE'S DISORDER [None]
